FAERS Safety Report 14583254 (Version 1)
Quarter: 2018Q1

REPORT INFORMATION
  Report Type: Spontaneous
  Country: US (occurrence: US)
  Receive Date: 20180228
  Receipt Date: 20180228
  Transmission Date: 20180509
  Serious: No
  Sender: FDA-Public Use
  Company Number: US-MYLANLABS-2018M1011601

PATIENT
  Sex: Female
  Weight: 76 kg

DRUGS (4)
  1. LIDOCAINE PATCH [Suspect]
     Active Substance: LIDOCAINE
     Indication: INTERVERTEBRAL DISC PROTRUSION
  2. HYDROCODONE [Concomitant]
     Active Substance: HYDROCODONE
     Indication: PAIN
     Dosage: UNK UNK, PRN, 10/325
  3. LIDOCAINE PATCH [Suspect]
     Active Substance: LIDOCAINE
     Indication: ARTHRITIS
  4. LIDOCAINE PATCH [Suspect]
     Active Substance: LIDOCAINE
     Indication: SPINAL COLUMN STENOSIS
     Dosage: UNK UNK, BID
     Route: 003

REACTIONS (4)
  - Off label use [Unknown]
  - Product adhesion issue [Unknown]
  - Drug ineffective for unapproved indication [Not Recovered/Not Resolved]
  - Product physical issue [Unknown]
